FAERS Safety Report 6336194-0 (Version None)
Quarter: 2009Q3

REPORT INFORMATION
  Report Type: 
  Country: None (occurrence: None)
  Receive Date: 20090831
  Receipt Date: 20090831
  Transmission Date: 20100115
  Serious: Yes (Other)
  Sender: FDA-Public Use
  Company Number: None

PATIENT
  Age: 60 Year
  Sex: Male
  Weight: 70.3075 kg

DRUGS (1)
  1. CIPROFLOXACIN [Suspect]
     Indication: BIOPSY PROSTATE
     Dosage: 7 *2 TAB. DAILY *1 TAB. DAY BEFORE BIOPSY
     Dates: start: 20090714, end: 20090717

REACTIONS (7)
  - ARTHRALGIA [None]
  - ARTHRITIS [None]
  - ERYTHEMA [None]
  - GAIT DISTURBANCE [None]
  - JOINT SWELLING [None]
  - MYALGIA [None]
  - PAIN IN EXTREMITY [None]
